FAERS Safety Report 8828050 (Version 1)
Quarter: 2012Q4

REPORT INFORMATION
  Report Type: 
  Country: US (occurrence: US)
  Receive Date: 20121005
  Receipt Date: 20121005
  Transmission Date: 20130627
  Serious: Yes (Other)
  Sender: FDA-Public Use
  Company Number: US-JNJFOC-20120912936

PATIENT
  Age: 84 Year
  Sex: Female
  Weight: 61 kg

DRUGS (7)
  1. XARELTO [Suspect]
     Indication: CEREBROVASCULAR ACCIDENT PROPHYLAXIS
     Route: 048
     Dates: start: 20120924
  2. XARELTO [Suspect]
     Indication: ATRIAL FIBRILLATION
     Route: 048
     Dates: start: 20120924
  3. PLAVIX [Concomitant]
     Dates: end: 201209
  4. ASPIRIN [Concomitant]
  5. DIOVAN [Concomitant]
  6. AMIODARONE [Concomitant]
  7. VERAPAMIL [Concomitant]

REACTIONS (1)
  - Chest pain [Not Recovered/Not Resolved]
